FAERS Safety Report 24800058 (Version 1)
Quarter: 2025Q1

REPORT INFORMATION
  Report Type: Report from Study
  Country: EG (occurrence: EG)
  Receive Date: 20250102
  Receipt Date: 20250102
  Transmission Date: 20250408
  Serious: Yes (Disabling, Other)
  Sender: NOVARTIS
  Company Number: EG-002147023-NVSC2024EG023540

PATIENT
  Age: 86 Year
  Sex: Female
  Weight: 70 kg

DRUGS (9)
  1. ENTRESTO [Suspect]
     Active Substance: SACUBITRIL\VALSARTAN
     Indication: Cardiac failure
     Dosage: 1 DOSAGE FORM, QD (100 MG)
     Route: 048
  2. ENTRESTO [Suspect]
     Active Substance: SACUBITRIL\VALSARTAN
     Dosage: 1 DOSAGE FORM, QD (200 MG)
     Route: 048
  3. ENTRESTO [Suspect]
     Active Substance: SACUBITRIL\VALSARTAN
     Dosage: UNK, BID
     Route: 048
     Dates: start: 2022
  4. ENTRESTO [Suspect]
     Active Substance: SACUBITRIL\VALSARTAN
     Dosage: 200 MG, BID (STRENGTH: 200 MG)
     Route: 048
     Dates: end: 20241226
  5. ENTRESTO [Suspect]
     Active Substance: SACUBITRIL\VALSARTAN
     Dosage: 50 MG, BID (STRENGTH: 50 MG)
     Route: 048
     Dates: start: 20241226
  6. TORSEMIDE [Suspect]
     Active Substance: TORSEMIDE
     Indication: Oedema
     Dosage: 20 MG, QD (TABLET STRENGTH: 20 MG)
     Route: 048
     Dates: end: 20241226
  7. TORSEMIDE [Suspect]
     Active Substance: TORSEMIDE
     Dosage: 10 MG, QD (TABLET STRENGTH: 10 MG)
     Route: 048
     Dates: start: 20241227
  8. ELIQUIS [Suspect]
     Active Substance: APIXABAN
     Indication: Antiplatelet therapy
     Dosage: UNK, BID (TABLET)
     Route: 048
     Dates: start: 2022
  9. UREA [Suspect]
     Active Substance: UREA
     Indication: Hypertension
     Dosage: UNK, BID (TABLET)
     Route: 048
     Dates: start: 2022

REACTIONS (6)
  - Anaemia [Recovering/Resolving]
  - Blood iron decreased [Not Recovered/Not Resolved]
  - Dyspnoea [Not Recovered/Not Resolved]
  - Blood creatinine increased [Not Recovered/Not Resolved]
  - Hypotension [Unknown]
  - Off label use [Unknown]

NARRATIVE: CASE EVENT DATE: 20241001
